FAERS Safety Report 6645250-9 (Version None)
Quarter: 2010Q1

REPORT INFORMATION
  Report Type: 
  Country: None (occurrence: None)
  Receive Date: 20100322
  Receipt Date: 20100311
  Transmission Date: 20100710
  Serious: Yes (Hospitalization, Other)
  Sender: FDA-Public Use
  Company Number: PHHY2009MX57880

PATIENT
  Age: 64 Year
  Sex: Female

DRUGS (1)
  1. EXFORGE [Suspect]
     Indication: HYPERTENSION
     Dosage: 1 TABLET (160/10 MG) PER DAY
     Dates: start: 20070801

REACTIONS (11)
  - CARDIOMEGALY [None]
  - CHEST PAIN [None]
  - DIZZINESS [None]
  - FALL [None]
  - HIP FRACTURE [None]
  - INFARCTION [None]
  - MEDICAL DEVICE IMPLANTATION [None]
  - PAIN [None]
  - RENAL FAILURE ACUTE [None]
  - SYNCOPE [None]
  - VESTIBULAR DISORDER [None]
